FAERS Safety Report 23463764 (Version 2)
Quarter: 2024Q1

REPORT INFORMATION
  Report Type: Report from Study
  Country: JP (occurrence: JP)
  Receive Date: 20240201
  Receipt Date: 20240304
  Transmission Date: 20240410
  Serious: Yes (Death, Other)
  Sender: FDA-Public Use
  Company Number: JP-TAKEDA-2024TJP001503

PATIENT
  Age: 77 Year
  Sex: Male
  Weight: 55 kg

DRUGS (2)
  1. LEUPROLIDE ACETATE [Suspect]
     Active Substance: ISOPROPYL ALCOHOL\LEUPROLIDE ACETATE
     Indication: Bulbospinal muscular atrophy congenital
     Dosage: 11.25 MILLIGRAM, Q3MONTHS
     Route: 058
     Dates: start: 20200225, end: 20220104
  2. AMBROXOL HYDROCHLORIDE [Concomitant]
     Active Substance: AMBROXOL HYDROCHLORIDE
     Indication: Bulbospinal muscular atrophy congenital
     Dosage: 45 MILLIGRAM
     Dates: start: 20220104, end: 20220428

REACTIONS (2)
  - Hypoxic-ischaemic encephalopathy [Fatal]
  - Asphyxia [Fatal]

NARRATIVE: CASE EVENT DATE: 20220429
